FAERS Safety Report 6981262-3 (Version None)
Quarter: 2010Q3

REPORT INFORMATION
  Report Type: 
  Country: None (occurrence: None)
  Receive Date: 20100914
  Receipt Date: 20100902
  Transmission Date: 20110219
  Serious: Yes (Other)
  Sender: FDA-Public Use
  Company Number: JP-PFIZER INC-2010110383

PATIENT
  Age: 31 Year
  Sex: Male

DRUGS (6)
  1. GABAPEN [Suspect]
     Indication: EPILEPSY
     Dosage: 600 MG/DAY
     Route: 048
     Dates: start: 20080301, end: 20080401
  2. GABAPEN [Suspect]
     Dosage: 1200 MG/DAY
     Route: 048
     Dates: start: 20080401, end: 20090201
  3. GABAPEN [Suspect]
     Dosage: 1500 MG/DAY
     Route: 048
     Dates: start: 20090201, end: 20090701
  4. GABAPEN [Suspect]
     Dosage: 1800 MG/DAY
     Route: 048
     Dates: start: 20090701
  5. TEGRETOL [Concomitant]
     Indication: EPILEPSY
     Dosage: 600 MG/DAY
     Route: 048
  6. MYSTAN [Concomitant]
     Indication: EPILEPSY
     Dosage: 10 MG/DAY
     Route: 048

REACTIONS (1)
  - IRON DEFICIENCY ANAEMIA [None]
